FAERS Safety Report 17257320 (Version 1)
Quarter: 2020Q1

REPORT INFORMATION
  Report Type: Spontaneous
  Country: US (occurrence: US)
  Receive Date: 20200110
  Receipt Date: 20200110
  Transmission Date: 20200409
  Serious: No
  Sender: FDA-Public Use
  Company Number: US-PFIZER INC-2020009715

PATIENT
  Age: 86 Year
  Sex: Male
  Weight: 77.11 kg

DRUGS (1)
  1. ADVIL LIQUI-GELS [Suspect]
     Active Substance: IBUPROFEN
     Dosage: UNK

REACTIONS (3)
  - Foreign body in respiratory tract [Unknown]
  - Throat irritation [Unknown]
  - Secretion discharge [Unknown]

NARRATIVE: CASE EVENT DATE: 2019
